FAERS Safety Report 16061505 (Version 1)
Quarter: 2019Q1

REPORT INFORMATION
  Report Type: Spontaneous
  Country: GB (occurrence: GB)
  Receive Date: 20190312
  Receipt Date: 20190312
  Transmission Date: 20190418
  Serious: Yes (Other)
  Sender: FDA-Public Use
  Company Number: GB-TEVA-2019-GB-1021801

PATIENT
  Age: 28 Year
  Sex: Male
  Weight: 76.2 kg

DRUGS (5)
  1. PHENERGAN [Concomitant]
     Active Substance: PROMETHAZINE HYDROCHLORIDE
  2. LYRICA [Concomitant]
     Active Substance: PREGABALIN
  3. BRISTOL LABS FLUOXETINE [Concomitant]
  4. COLGATE DURAPHAT [Concomitant]
     Active Substance: SODIUM FLUORIDE
  5. BUPRENORPHINE. [Suspect]
     Active Substance: BUPRENORPHINE
     Indication: SUBSTANCE DEPENDENCE
     Dosage: 16 MILLIGRAM DAILY;
     Route: 060
     Dates: start: 20190117, end: 20190121

REACTIONS (7)
  - Product substitution issue [Unknown]
  - Pain of skin [Recovered/Resolved]
  - Malaise [Unknown]
  - Administration site pain [Recovered/Resolved]
  - Rash [Recovered/Resolved]
  - Skin irritation [Recovered/Resolved]
  - Hypersensitivity [Recovered/Resolved]

NARRATIVE: CASE EVENT DATE: 20190120
